FAERS Safety Report 15782741 (Version 2)
Quarter: 2019Q1

REPORT INFORMATION
  Report Type: Spontaneous
  Country: US (occurrence: US)
  Receive Date: 20190102
  Receipt Date: 20190110
  Transmission Date: 20190417
  Serious: No
  Sender: FDA-Public Use
  Company Number: US-PFIZER INC-2018533721

PATIENT
  Age: 68 Year
  Sex: Female

DRUGS (6)
  1. EPINEPHRINE. [Suspect]
     Active Substance: EPINEPHRINE
     Dosage: UNK
  2. CYMBALTA [Suspect]
     Active Substance: DULOXETINE HYDROCHLORIDE
     Dosage: UNK
  3. SIMVASTATIN. [Suspect]
     Active Substance: SIMVASTATIN
     Dosage: UNK
  4. ASA [Suspect]
     Active Substance: ASPIRIN
     Dosage: UNK
  5. PROPOXYPHENE. [Suspect]
     Active Substance: PROPOXYPHENE
     Dosage: UNK
  6. ZETIA [Suspect]
     Active Substance: EZETIMIBE
     Dosage: UNK

REACTIONS (1)
  - Drug hypersensitivity [Unknown]
